FAERS Safety Report 17567587 (Version 1)
Quarter: 2020Q1

REPORT INFORMATION
  Report Type: Report from Study
  Country: CA (occurrence: CA)
  Receive Date: 20200320
  Receipt Date: 20200320
  Transmission Date: 20200409
  Serious: Yes (Other)
  Sender: FDA-Public Use
  Company Number: CA-JNJFOC-20200318338

PATIENT
  Age: 50 Year
  Sex: Male
  Weight: 68.04 kg

DRUGS (1)
  1. STELARA [Suspect]
     Active Substance: USTEKINUMAB
     Indication: PSORIASIS
     Route: 058

REACTIONS (3)
  - Hypoaesthesia [Unknown]
  - Injection site pain [Recovered/Resolved]
  - Dupuytren^s contracture [Unknown]

NARRATIVE: CASE EVENT DATE: 20200103
